FAERS Safety Report 8287165-9 (Version None)
Quarter: 2012Q2

REPORT INFORMATION
  Report Type: 
  Country: None (occurrence: None)
  Receive Date: 20120416
  Receipt Date: 20120405
  Transmission Date: 20120825
  Serious: Yes (Other)
  Sender: FDA-Public Use
  Company Number: US-BAYER-2011-094024

PATIENT
  Age: 40 Year
  Sex: Female
  Weight: 127 kg

DRUGS (9)
  1. YAZ [Suspect]
     Indication: PREMENSTRUAL SYNDROME
     Dosage: UNK UNK, QD
     Route: 048
     Dates: start: 20090707, end: 20091016
  2. LEVAQUIN [Concomitant]
     Dosage: UNK
     Dates: start: 20091001
  3. NAPROXEN [Concomitant]
     Indication: PAIN
     Dosage: UNK
     Dates: start: 20091104, end: 20091120
  4. MULTI-VITAMIN [Concomitant]
  5. SUMATRIPTAN [Concomitant]
     Indication: MIGRAINE
     Dosage: UNK
     Dates: start: 20090701, end: 20090801
  6. EXPECTUSS [Concomitant]
     Dosage: UNK
     Dates: start: 20090902
  7. OTC PAIN RELIEVERS [Concomitant]
     Dosage: UNK
     Dates: start: 20091001
  8. NAPROXEN [Concomitant]
  9. FLEXERIL [Concomitant]
     Indication: HYPOTONIA
     Dosage: 10 MG, TID
     Dates: start: 20091104, end: 20091120

REACTIONS (21)
  - MUSCULOSKELETAL PAIN [None]
  - CHEST PAIN [None]
  - PHOTOPHOBIA [None]
  - INSOMNIA [None]
  - PULMONARY EMBOLISM [None]
  - HAEMANGIOMA OF SPLEEN [None]
  - COUGH [None]
  - HAEMOPTYSIS [None]
  - DYSPNOEA [None]
  - PRODUCTIVE COUGH [None]
  - EMOTIONAL DISTRESS [None]
  - FEAR [None]
  - INJURY [None]
  - PAIN [None]
  - PANIC ATTACK [None]
  - CLAUSTROPHOBIA [None]
  - NAUSEA [None]
  - GENERAL PHYSICAL HEALTH DETERIORATION [None]
  - DEPRESSION [None]
  - MIGRAINE [None]
  - ANXIETY [None]
